FAERS Safety Report 4274519-0 (Version None)
Quarter: 2004Q1

REPORT INFORMATION
  Report Type: 
  Country: None (occurrence: None)
  Receive Date: 20040120
  Receipt Date: 20040105
  Transmission Date: 20041129
  Serious: Yes (Hospitalization)
  Sender: FDA-Public Use
  Company Number: FR-ROCHE-355106

PATIENT
  Age: 28 Year
  Sex: Male

DRUGS (4)
  1. RIVOTRIL [Suspect]
     Route: 048
     Dates: start: 20031123, end: 20031123
  2. ZYPREXA [Suspect]
     Route: 048
     Dates: start: 20031123, end: 20031123
  3. TERCIAN [Suspect]
     Route: 048
     Dates: start: 20031123, end: 20031123
  4. CANNABIS [Concomitant]

REACTIONS (5)
  - COUGH [None]
  - DRUG ABUSER [None]
  - HYPOTENSION [None]
  - OVERDOSE [None]
  - SOMNOLENCE [None]
